FAERS Safety Report 9469750 (Version 2)
Quarter: 2013Q4

REPORT INFORMATION
  Report Type: Spontaneous
  Country: GB (occurrence: GB)
  Receive Date: 20130822
  Receipt Date: 20131029
  Transmission Date: 20140711
  Serious: Yes (Disabling, Other)
  Sender: FDA-Public Use
  Company Number: PHFR2013GB004823

PATIENT
  Sex: Male

DRUGS (2)
  1. CLOZARIL [Suspect]
     Indication: SCHIZOPHRENIA
     Dosage: 500 MG (300 MG NIGHT AND 200 MG MORNING)
     Route: 048
     Dates: start: 20120830, end: 20131001
  2. AMISULPRIDE [Concomitant]
     Indication: MAMMOPLASTY
     Dosage: 800 MG
     Route: 048

REACTIONS (3)
  - Electrocardiogram abnormal [Recovered/Resolved]
  - Electrocardiogram QT prolonged [Unknown]
  - Drug abuse [Unknown]
